FAERS Safety Report 18840626 (Version 1)
Quarter: 2021Q1

REPORT INFORMATION
  Report Type: Spontaneous
  Country: DE (occurrence: DE)
  Receive Date: 20210204
  Receipt Date: 20210204
  Transmission Date: 20210419
  Serious: Yes (Life-Threatening, Other)
  Sender: FDA-Public Use
  Company Number: DE-SUN PHARMACEUTICAL INDUSTRIES LTD-2021RR-278956

PATIENT
  Age: 29 Year
  Sex: Female
  Weight: 53 kg

DRUGS (6)
  1. VENLAFAXINE [Suspect]
     Active Substance: VENLAFAXINE HYDROCHLORIDE
     Indication: DEPRESSION
     Dosage: 37,5 MG ()
     Route: 048
     Dates: start: 20190810
  2. VALDOXAN [Suspect]
     Active Substance: AGOMELATINE
     Indication: RESTLESSNESS
     Dosage: 25 ? 50 MG ()
     Route: 048
     Dates: start: 201911, end: 20201113
  3. VENLAFAXINE [Suspect]
     Active Substance: VENLAFAXINE HYDROCHLORIDE
     Dosage: 150 MG ()
     Route: 048
     Dates: start: 2019, end: 20201130
  4. VENLAFAXINE [Suspect]
     Active Substance: VENLAFAXINE HYDROCHLORIDE
     Indication: DEPRESSION
     Dosage: 225 MG
     Route: 048
     Dates: start: 20190810, end: 20201231
  5. FERRO?SANOL DUODENAL [Suspect]
     Active Substance: FERROUS GLYCINE SULFATE
     Indication: FATIGUE
     Dosage: 1?0?0; 100 MG TAGLICH MORGENS  + BEI BEDARF MEHR
     Route: 048
     Dates: start: 20201004, end: 20201112
  6. TAVOR (LORAZEPAM) [Suspect]
     Active Substance: LORAZEPAM
     Indication: ANXIETY
     Dosage: 1 TBL CA 6 X VERORDNET OHNE DIES ZU WOLLEN ()
     Route: 048
     Dates: start: 201907, end: 201909

REACTIONS (29)
  - Impaired quality of life [Not Recovered/Not Resolved]
  - Neck pain [Recovered/Resolved with Sequelae]
  - Chills [Recovered/Resolved with Sequelae]
  - Depression [Unknown]
  - Retching [Not Recovered/Not Resolved]
  - Muscle twitching [Recovered/Resolved with Sequelae]
  - Respiratory distress [Recovering/Resolving]
  - Panic attack [Not Recovered/Not Resolved]
  - Tremor [Recovered/Resolved with Sequelae]
  - Pruritus [Unknown]
  - Feeling abnormal [Unknown]
  - Pain in extremity [Recovered/Resolved with Sequelae]
  - Dizziness [Not Recovered/Not Resolved]
  - Headache [Not Recovered/Not Resolved]
  - Diarrhoea [Unknown]
  - Fatigue [Not Recovered/Not Resolved]
  - Palpitations [Recovering/Resolving]
  - Diarrhoea [Not Recovered/Not Resolved]
  - Restlessness [Not Recovered/Not Resolved]
  - Vomiting [Not Recovered/Not Resolved]
  - Menstrual discomfort [Not Recovered/Not Resolved]
  - Serotonin syndrome [Unknown]
  - Malaise [Recovered/Resolved with Sequelae]
  - Insomnia [Not Recovered/Not Resolved]
  - Weight decreased [Not Recovered/Not Resolved]
  - Dyspepsia [Not Recovered/Not Resolved]
  - Movement disorder [Recovered/Resolved with Sequelae]
  - Asthenia [Recovered/Resolved with Sequelae]
  - Back pain [Recovered/Resolved with Sequelae]

NARRATIVE: CASE EVENT DATE: 2016
